FAERS Safety Report 5108166-5 (Version None)
Quarter: 2006Q3

REPORT INFORMATION
  Report Type: 
  Country: None (occurrence: None)
  Receive Date: 20060919
  Receipt Date: 20060314
  Transmission Date: 20061208
  Serious: Yes (Other)
  Sender: FDA-Public Use
  Company Number: US-ROCHE-440348

PATIENT
  Age: 20 Year
  Sex: Female
  Weight: 67.1 kg

DRUGS (3)
  1. ACCUTANE [Suspect]
     Indication: ACNE
     Dosage: DOSAGE REPORTED AS 80/40 MG ALTERNATE.
     Route: 048
     Dates: start: 20030115, end: 20030715
  2. VALIUM [Suspect]
     Indication: DRUG USE FOR UNKNOWN INDICATION
     Route: 065
     Dates: start: 20000615, end: 20000615
  3. CYMBALTA [Concomitant]
     Dosage: THE DOSE WAS DECREASED FROM 60 MG DAILY TO 30 MG DAILY IN APRIL 2005.
     Dates: start: 20050615

REACTIONS (18)
  - ANHEDONIA [None]
  - ANXIETY [None]
  - BACK PAIN [None]
  - CHEILITIS [None]
  - DECREASED APPETITE [None]
  - DIZZINESS [None]
  - DRY SKIN [None]
  - GASTROINTESTINAL DISORDER [None]
  - HEADACHE [None]
  - INFLAMMATORY BOWEL DISEASE [None]
  - IRRITABLE BOWEL SYNDROME [None]
  - MAJOR DEPRESSION [None]
  - NASAL DISCOMFORT [None]
  - NIGHT BLINDNESS [None]
  - NO ADVERSE EFFECT [None]
  - OVERDOSE [None]
  - SOMNOLENCE [None]
  - SUICIDAL IDEATION [None]
